FAERS Safety Report 22751541 (Version 2)
Quarter: 2023Q4

REPORT INFORMATION
  Report Type: Spontaneous
  Country: TR (occurrence: TR)
  Receive Date: 20230726
  Receipt Date: 20231003
  Transmission Date: 20240110
  Serious: Yes (Hospitalization, Other)
  Sender: FDA-Public Use
  Company Number: TR-002147023-NVSC2023TR163011

PATIENT
  Age: 21 Year
  Sex: Male

DRUGS (1)
  1. ILARIS [Suspect]
     Active Substance: CANAKINUMAB
     Indication: Rheumatoid arthritis
     Dosage: FROM 6 MONTHS, QMO
     Route: 065

REACTIONS (4)
  - Haemorrhage [Unknown]
  - Haemoglobin decreased [Unknown]
  - Wound [Unknown]
  - Product use in unapproved indication [Unknown]
